FAERS Safety Report 24691510 (Version 1)
Quarter: 2024Q4

REPORT INFORMATION
  Report Type: Spontaneous
  Country: CH (occurrence: CH)
  Receive Date: 20241203
  Receipt Date: 20241203
  Transmission Date: 20250115
  Serious: Yes (Other)
  Sender: PFIZER
  Company Number: None

PATIENT
  Age: 73 Year
  Sex: Male

DRUGS (18)
  1. SOLU-MEDROL [Interacting]
     Active Substance: METHYLPREDNISOLONE SODIUM SUCCINATE
     Dosage: 250 MG, TOTAL
     Route: 040
     Dates: start: 20240212, end: 20240212
  2. SOLU-MEDROL [Interacting]
     Active Substance: METHYLPREDNISOLONE SODIUM SUCCINATE
     Dosage: 250 MG, TOTAL
     Route: 040
     Dates: start: 20240226, end: 20240226
  3. PREDNISONE [Interacting]
     Active Substance: PREDNISONE
     Indication: Immunosuppressant drug therapy
     Dosage: UNK
     Dates: start: 2021, end: 202401
  4. PREDNISONE [Interacting]
     Active Substance: PREDNISONE
     Dosage: 60 MG, DAILY
     Dates: start: 20240118, end: 20240118
  5. PREDNISONE [Interacting]
     Active Substance: PREDNISONE
     Dosage: BETWEEN 50 AND 60 MG/DAY
     Dates: start: 202401
  6. PREDNISONE [Interacting]
     Active Substance: PREDNISONE
     Dosage: 15 MG, DAILY
  7. PREDNISONE [Interacting]
     Active Substance: PREDNISONE
     Dosage: 50 MG
     Dates: start: 20240827, end: 20240827
  8. CETIRIZINE [Interacting]
     Active Substance: CETIRIZINE HYDROCHLORIDE
     Dosage: 10 MG, TOTAL
     Route: 048
     Dates: start: 20240827, end: 20240827
  9. MESTINON [Interacting]
     Active Substance: PYRIDOSTIGMINE BROMIDE
     Dosage: 180 MG, 3X/DAY (7H00, 11H30, 16H00)
     Dates: start: 2021
  10. CANDESARTAN [Concomitant]
     Active Substance: CANDESARTAN
     Dosage: 8 MG, DAILY
     Dates: end: 202410
  11. APIXABAN [Concomitant]
     Active Substance: APIXABAN
     Dosage: 2X 5 MG/D
  12. NEXIUM [Concomitant]
     Active Substance: ESOMEPRAZOLE MAGNESIUM
     Dosage: 40 MG, DAILY
  13. EZETIMIBE [Concomitant]
     Active Substance: EZETIMIBE
     Dosage: 10 MG, DAILY
  14. ROSUVASTATIN [Concomitant]
     Active Substance: ROSUVASTATIN
     Dosage: 20 MG, DAILY
  15. CALCIMAGON D3 FORTE [Concomitant]
     Dosage: 1 DF
  16. DAFALGAN [Concomitant]
     Active Substance: ACETAMINOPHEN
     Dosage: 1G 3X/D
  17. RITUXIMAB [Concomitant]
     Active Substance: RITUXIMAB
     Dosage: 500 MG
     Dates: start: 20240212, end: 20240212
  18. RITUXIMAB [Concomitant]
     Active Substance: RITUXIMAB
     Dosage: 500 MG
     Dates: start: 20240226, end: 20240226

REACTIONS (3)
  - Drug interaction [Recovered/Resolved]
  - Myasthenia gravis [Recovered/Resolved]
  - Myasthenia gravis [Recovered/Resolved]

NARRATIVE: CASE EVENT DATE: 20240201
